FAERS Safety Report 14193293 (Version 4)
Quarter: 2017Q4

REPORT INFORMATION
  Report Type: Spontaneous
  Country: GB (occurrence: GB)
  Receive Date: 20171116
  Receipt Date: 20171120
  Transmission Date: 20180321
  Serious: Yes (Hospitalization, Other)
  Sender: FDA-Public Use
  Company Number: GB-CONCORDIA PHARMACEUTICALS INC.-GSH201301-000381

PATIENT
  Age: 76 Year
  Sex: Female

DRUGS (13)
  1. AMLODIPINE [Concomitant]
     Active Substance: AMLODIPINE BESYLATE
  2. OMEPRAZOLE. [Concomitant]
     Active Substance: OMEPRAZOLE
  3. DIGOXIN. [Suspect]
     Active Substance: DIGOXIN
  4. DIGOXIN. [Suspect]
     Active Substance: DIGOXIN
  5. BISOPROLOL [Concomitant]
     Active Substance: BISOPROLOL
  6. SIMVASTATIN. [Concomitant]
     Active Substance: SIMVASTATIN
  7. ERYTHROMYCIN. [Concomitant]
     Active Substance: ERYTHROMYCIN
     Indication: CELLULITIS
  8. DIGOXIN. [Suspect]
     Active Substance: DIGOXIN
  9. ACENOCUMEROL [Suspect]
     Active Substance: ACENOCOUMAROL
  10. INDAPAMIDE SR [Concomitant]
     Active Substance: INDAPAMIDE
  11. LISINOPRIL. [Concomitant]
     Active Substance: LISINOPRIL
  12. CLOPIDOGREL [Concomitant]
     Active Substance: CLOPIDOGREL BISULFATE
  13. WARFARIN [Suspect]
     Active Substance: WARFARIN

REACTIONS (2)
  - Toxicity to various agents [Recovering/Resolving]
  - Hypersensitivity [Unknown]
